FAERS Safety Report 5452875-5 (Version None)
Quarter: 2007Q3

REPORT INFORMATION
  Report Type: 
  Country: None (occurrence: None)
  Receive Date: 20070914
  Receipt Date: 20070910
  Transmission Date: 20080115
  Serious: Yes (Other)
  Sender: FDA-Public Use
  Company Number: A0666913A

PATIENT
  Age: 28 Year
  Sex: Female

DRUGS (3)
  1. PAXIL [Suspect]
     Indication: DEPRESSION
     Route: 048
     Dates: start: 20010101, end: 20020101
  2. PAXIL CR [Suspect]
     Indication: MAJOR DEPRESSION
     Route: 048
     Dates: start: 20020101
  3. SEROQUEL [Concomitant]

REACTIONS (13)
  - AMNESIA [None]
  - ANXIETY [None]
  - BREAST DISORDER FEMALE [None]
  - DISTURBANCE IN SOCIAL BEHAVIOUR [None]
  - HEADACHE [None]
  - HYPOAESTHESIA FACIAL [None]
  - ILL-DEFINED DISORDER [None]
  - NEGATIVE THOUGHTS [None]
  - PANIC ATTACK [None]
  - PARAESTHESIA [None]
  - PARANOIA [None]
  - SPINAL DISORDER [None]
  - SUICIDAL IDEATION [None]
